FAERS Safety Report 20113727 (Version 2)
Quarter: 2021Q4

REPORT INFORMATION
  Report Type: Report from Study
  Country: GB (occurrence: GB)
  Receive Date: 20211125
  Receipt Date: 20211223
  Transmission Date: 20220304
  Serious: Yes (Other)
  Sender: FDA-Public Use
  Company Number: GB-NOVARTISPH-NVSC2021GB233762

PATIENT
  Age: 67 Year
  Sex: Female

DRUGS (2)
  1. LUTATHERA [Suspect]
     Active Substance: LUTETIUM OXODOTREOTIDE LU-177
     Indication: Neuroendocrine tumour
     Dosage: (4 CYCLES, 8 - 10 WEEKS APART)
     Route: 042
     Dates: start: 20200409
  2. LUTATHERA [Suspect]
     Active Substance: LUTETIUM OXODOTREOTIDE LU-177
     Dosage: (4 CYCLES, 8 - 10 WEEKS APART)
     Route: 042
     Dates: start: 20210409, end: 20211104

REACTIONS (5)
  - Breast cancer [Unknown]
  - Coccydynia [Not Recovered/Not Resolved]
  - Mammogram abnormal [Unknown]
  - Spinal pain [Unknown]
  - Musculoskeletal pain [Unknown]

NARRATIVE: CASE EVENT DATE: 20210301
